FAERS Safety Report 17895815 (Version 9)
Quarter: 2021Q3

REPORT INFORMATION
  Report Type: Spontaneous
  Country: US (occurrence: US)
  Receive Date: 20200615
  Receipt Date: 20210927
  Transmission Date: 20211014
  Serious: Yes (Other)
  Sender: FDA-Public Use
  Company Number: US-SA-2020SA149665

PATIENT
  Age: 72 Year
  Sex: Female

DRUGS (1)
  1. KEVZARA [Suspect]
     Active Substance: SARILUMAB
     Indication: RHEUMATOID ARTHRITIS
     Dosage: 200 MG, QOW
     Route: 058
     Dates: start: 202005

REACTIONS (8)
  - Nasopharyngitis [Unknown]
  - Blood urine [Recovered/Resolved]
  - Thrombosis [Unknown]
  - Urinary tract infection [Recovered/Resolved]
  - Headache [Unknown]
  - Cough [Unknown]
  - Limb injury [Unknown]
  - Ear infection [Unknown]

NARRATIVE: CASE EVENT DATE: 2020
